FAERS Safety Report 8563463-6 (Version None)
Quarter: 2012Q3

REPORT INFORMATION
  Report Type: 
  Country: None (occurrence: None)
  Receive Date: 20120802
  Receipt Date: 20120726
  Transmission Date: 20120928
  Serious: Yes (Hospitalization, Other)
  Sender: FDA-Public Use
  Company Number: US-ALLERGAN-1210350US

PATIENT
  Age: 30 Year
  Sex: Female

DRUGS (8)
  1. OXYCODONE HCL [Concomitant]
     Indication: PAIN
     Dosage: UNK
     Dates: start: 20090101
  2. BOTULINUM TOXIN TYPE A [Suspect]
     Indication: NECK PAIN
     Dosage: UNK, SINGLE
     Route: 030
     Dates: start: 20120401, end: 20120401
  3. PRILOSEC [Concomitant]
     Indication: GASTRIC DISORDER
  4. BOTULINUM TOXIN TYPE A [Suspect]
     Indication: HEADACHE
  5. ORAL CONTRACEPTIVE NOS [Concomitant]
     Indication: PRODUCT USED FOR UNKNOWN INDICATION
  6. XANAX [Concomitant]
     Indication: ANXIETY
  7. BOTULINUM TOXIN TYPE A [Suspect]
     Indication: MUSCLE SPASMS
  8. IMITREX [Concomitant]
     Indication: HEADACHE

REACTIONS (14)
  - MUSCLE SPASMS [None]
  - WEIGHT DECREASED [None]
  - NECK PAIN [None]
  - DYSPHAGIA [None]
  - FATIGUE [None]
  - VISION BLURRED [None]
  - CONSTIPATION [None]
  - RECTAL HAEMORRHAGE [None]
  - MUSCULAR WEAKNESS [None]
  - DYSURIA [None]
  - PALPITATIONS [None]
  - ABDOMINAL PAIN UPPER [None]
  - DIARRHOEA [None]
  - HEMIPARESIS [None]
